FAERS Safety Report 25387665 (Version 4)
Quarter: 2025Q3

REPORT INFORMATION
  Report Type: Spontaneous
  Country: JP (occurrence: JP)
  Receive Date: 20250603
  Receipt Date: 20250807
  Transmission Date: 20251020
  Serious: Yes (Other)
  Sender: NOVO NORDISK
  Company Number: JP-NOVOPROD-1442607

PATIENT
  Age: 14 Year
  Sex: Male
  Weight: 63.8 kg

DRUGS (3)
  1. CONCIZUMAB [Suspect]
     Active Substance: CONCIZUMAB
     Indication: Factor VIII deficiency
     Dosage: 63 MG, QD
     Route: 058
     Dates: start: 20250508
  2. CONCIZUMAB [Suspect]
     Active Substance: CONCIZUMAB
     Indication: Haemostasis
     Dosage: 12 MG, QD
     Route: 058
     Dates: start: 20250509
  3. HEMLIBRA [Concomitant]
     Active Substance: EMICIZUMAB-KXWH
     Dates: start: 20241010, end: 20250330

REACTIONS (1)
  - Mitral valve incompetence [Not Recovered/Not Resolved]

NARRATIVE: CASE EVENT DATE: 20250520
